FAERS Safety Report 9322773 (Version 1)
Quarter: 2013Q2

REPORT INFORMATION
  Report Type: Spontaneous
  Country: US (occurrence: US)
  Receive Date: 20130601
  Receipt Date: 20130601
  Transmission Date: 20140414
  Serious: No
  Sender: FDA-Public Use
  Company Number: US-B.I. PHARMACEUTICALS,INC./RIDGEFIELD-2013-BI-15184BP

PATIENT
  Age: 68 Year
  Sex: Female
  Weight: 109 kg

DRUGS (7)
  1. PRADAXA [Suspect]
     Indication: ATRIAL FIBRILLATION
     Dosage: 300 MG
     Route: 048
     Dates: start: 201301, end: 20130523
  2. PRADAXA [Suspect]
     Dosage: 300 MG
     Route: 048
     Dates: start: 20130525
  3. NEXIUM [Concomitant]
     Indication: DYSPEPSIA
     Dosage: 40 MG
     Route: 048
     Dates: start: 2010
  4. SOTALOL [Concomitant]
     Indication: ATRIAL FIBRILLATION
     Dosage: 120 MG
     Route: 048
     Dates: start: 2011
  5. ESCITALOPRAM [Concomitant]
     Dosage: 20 MG
     Route: 048
  6. LOSARTAN-HCTZ [Concomitant]
     Dosage: STRENGTH: 50 MG - 12.5 MG; DAILY DOSE: 50 MG - 12.5 MG
     Route: 048
  7. ROPINIROLE HCL [Concomitant]
     Indication: TREMOR
     Dosage: 1 MG
     Route: 048

REACTIONS (9)
  - Chest pain [Not Recovered/Not Resolved]
  - Erythema [Not Recovered/Not Resolved]
  - Oral mucosal erythema [Not Recovered/Not Resolved]
  - Erythema of eyelid [Not Recovered/Not Resolved]
  - Periorbital contusion [Not Recovered/Not Resolved]
  - Eyelid oedema [Not Recovered/Not Resolved]
  - Flushing [Not Recovered/Not Resolved]
  - Initial insomnia [Not Recovered/Not Resolved]
  - Vein disorder [Not Recovered/Not Resolved]
